FAERS Safety Report 14133616 (Version 1)
Quarter: 2017Q4

REPORT INFORMATION
  Report Type: Spontaneous
  Country: US (occurrence: None)
  Receive Date: 20171026
  Receipt Date: 20171026
  Transmission Date: 20180321
  Serious: Yes (Hospitalization)
  Sender: FDA-Public Use
  Company Number: None

PATIENT
  Age: 35 Year
  Sex: Female

DRUGS (1)
  1. GILENYA [Suspect]
     Active Substance: FINGOLIMOD HYDROCHLORIDE
     Indication: MULTIPLE SCLEROSIS
     Route: 048
     Dates: start: 20170919, end: 20171023

REACTIONS (6)
  - Asthenia [None]
  - Visual impairment [None]
  - Diarrhoea [None]
  - Disease recurrence [None]
  - Mobility decreased [None]
  - Vomiting [None]

NARRATIVE: CASE EVENT DATE: 20171018
